FAERS Safety Report 17342464 (Version 1)
Quarter: 2020Q1

REPORT INFORMATION
  Report Type: Spontaneous
  Country: US (occurrence: US)
  Receive Date: 20200129
  Receipt Date: 20200129
  Transmission Date: 20200409
  Serious: No
  Sender: FDA-Public Use
  Company Number: US-009507513-2001USA006801

PATIENT
  Age: 59 Year
  Sex: Male

DRUGS (22)
  1. ASPIRIN. [Concomitant]
     Active Substance: ASPIRIN
  2. CYCLOBENZAPRINE HYDROCHLORIDE. [Concomitant]
     Active Substance: CYCLOBENZAPRINE HYDROCHLORIDE
  3. MIRALAX [Concomitant]
     Active Substance: POLYETHYLENE GLYCOL 3350
  4. OXYCODONE [Concomitant]
     Active Substance: OXYCODONE
  5. ZINC (UNSPECIFIED) [Concomitant]
     Active Substance: ZINC
  6. LANTUS [Concomitant]
     Active Substance: INSULIN GLARGINE
  7. KEYTRUDA [Suspect]
     Active Substance: PEMBROLIZUMAB
     Indication: NON-SMALL CELL LUNG CANCER METASTATIC
     Dosage: UNK
     Dates: start: 201911
  8. GLIPIZIDE. [Concomitant]
     Active Substance: GLIPIZIDE
  9. ALBUTEROL (+) IPRATROPIUM BROMIDE [Concomitant]
     Active Substance: ALBUTEROL\IPRATROPIUM BROMIDE
  10. PROVENTIL [Concomitant]
     Active Substance: ALBUTEROL
  11. SPIRIVA [Concomitant]
     Active Substance: TIOTROPIUM BROMIDE MONOHYDRATE
  12. ALPRAZOLAM. [Concomitant]
     Active Substance: ALPRAZOLAM
  13. AURYXIA [Concomitant]
     Active Substance: TETRAFERRIC TRICITRATE DECAHYDRATE
  14. CLOPIDOGREL [Concomitant]
     Active Substance: CLOPIDOGREL BISULFATE
  15. ADVAIR HFA [Concomitant]
     Active Substance: FLUTICASONE PROPIONATE\SALMETEROL XINAFOATE
  16. ATORVASTATIN [Concomitant]
     Active Substance: ATORVASTATIN
  17. FAMOTIDINE. [Concomitant]
     Active Substance: FAMOTIDINE
  18. AMITIZA [Concomitant]
     Active Substance: LUBIPROSTONE
  19. DIALYVITE [Concomitant]
     Active Substance: ASCORBIC ACID\BIOTIN\CALCIUM PANTOTHENATE\COBALAMIN\FOLIC ACID\NIACINAMIDE\PYRIDOXINE HYDROCHLORIDE\RIBOFLAVIN\THIAMINE MONONITRATE
  20. NOVOLOG [Concomitant]
     Active Substance: INSULIN ASPART
  21. CARVEDILOL. [Concomitant]
     Active Substance: CARVEDILOL
  22. LIDOCAINE (+) PRILOCAINE [Concomitant]

REACTIONS (1)
  - Dysgeusia [Not Recovered/Not Resolved]

NARRATIVE: CASE EVENT DATE: 201912
